FAERS Safety Report 9612962 (Version 1)
Quarter: 2013Q4

REPORT INFORMATION
  Report Type: Spontaneous
  Country: CN (occurrence: CN)
  Receive Date: 20131010
  Receipt Date: 20131010
  Transmission Date: 20140711
  Serious: Yes (Death, Other)
  Sender: FDA-Public Use
  Company Number: PHHY2013CN110317

PATIENT
  Age: 66 Year
  Sex: Male

DRUGS (3)
  1. VINCRISTINE [Suspect]
     Indication: LANGERHANS^ CELL HISTIOCYTOSIS
  2. PREDNISONE [Suspect]
     Indication: LANGERHANS^ CELL HISTIOCYTOSIS
  3. CYCLOPHOSPHAMIDE [Suspect]
     Indication: LANGERHANS^ CELL HISTIOCYTOSIS

REACTIONS (2)
  - Death [Fatal]
  - Bone marrow failure [Unknown]
